FAERS Safety Report 21411887 (Version 1)
Quarter: 2022Q4

REPORT INFORMATION
  Report Type: Spontaneous
  Country: US (occurrence: US)
  Receive Date: 20221005
  Receipt Date: 20221005
  Transmission Date: 20230113
  Serious: No
  Sender: FDA-Public Use
  Company Number: US-PFIZER INC-202201201549

PATIENT
  Age: 5 Year
  Sex: Female

DRUGS (5)
  1. LORBRENA [Suspect]
     Active Substance: LORLATINIB
     Indication: Adrenal gland cancer
     Dosage: 75 MG, DAILY (25MG/TAKE THREE TABLETS BY MOUTH DAILY FOR 30DAYS)
     Route: 048
  2. WATER FOR INJECTION [Concomitant]
     Active Substance: WATER
     Dosage: UNK
  3. ARANESP [Concomitant]
     Active Substance: DARBEPOETIN ALFA
     Dosage: UNK
  4. IMODIUM A-D [Concomitant]
     Active Substance: LOPERAMIDE HYDROCHLORIDE
     Dosage: UNK
  5. NPLATE [Concomitant]
     Active Substance: ROMIPLOSTIM
     Dosage: UNK

REACTIONS (3)
  - Faecal volume increased [Unknown]
  - Off label use [Unknown]
  - Off label use [Unknown]
